FAERS Safety Report 21161246 (Version 1)
Quarter: 2022Q3

REPORT INFORMATION
  Report Type: Spontaneous
  Country: US (occurrence: None)
  Receive Date: 20220801
  Receipt Date: 20220801
  Transmission Date: 20221027
  Serious: Yes (Other)
  Sender: FDA-Public Use
  Company Number: None

PATIENT
  Age: 57 Year
  Sex: Female

DRUGS (1)
  1. CITROMA [Suspect]
     Active Substance: MAGNESIUM CITRATE

REACTIONS (5)
  - Regurgitation [None]
  - Fall [None]
  - Head injury [None]
  - Syncope [None]
  - Loss of consciousness [None]

NARRATIVE: CASE EVENT DATE: 20220801
